FAERS Safety Report 7112412-6 (Version None)
Quarter: 2010Q4

REPORT INFORMATION
  Report Type: 
  Country: None (occurrence: None)
  Receive Date: 20101119
  Receipt Date: 20101025
  Transmission Date: 20110411
  Serious: No
  Sender: FDA-Public Use
  Company Number: A0888652A

PATIENT
  Age: 70 Year
  Sex: Male

DRUGS (4)
  1. AVODART [Suspect]
     Indication: BENIGN PROSTATIC HYPERPLASIA
     Dosage: 1CAP PER DAY
     Route: 048
     Dates: start: 20100601, end: 20101011
  2. BENICAR [Concomitant]
  3. UROXATRAL [Concomitant]
  4. OXAPROZIN [Concomitant]

REACTIONS (3)
  - BRADYCARDIA [None]
  - COLONOSCOPY [None]
  - DIZZINESS [None]
